FAERS Safety Report 7903446-X (Version None)
Quarter: 2011Q4

REPORT INFORMATION
  Report Type: 
  Country: None (occurrence: None)
  Receive Date: 20111107
  Receipt Date: 20111020
  Transmission Date: 20120403
  Serious: Yes (Hospitalization)
  Sender: FDA-Public Use
  Company Number: USA/USA/11/0021671

PATIENT
  Age: 69 Year
  Sex: Male

DRUGS (9)
  1. ALBUTEROL-IPRATROPIUM (SALBUTAMOL W/IPRATROPIUM) [Concomitant]
  2. WARFARIN SODIUM [Concomitant]
  3. LEVOTHYROXINE SODIUM [Concomitant]
  4. ACUTE DECOMPENSATED HEART FAILURE [Concomitant]
  5. ATORVASTATIN [Concomitant]
  6. CARVEDILOL [Suspect]
     Indication: CARDIAC FAILURE
     Dosage: 75 MG, 25 MG(MORNING) + 50 MG (EVENING)
  7. EPLERENONE [Concomitant]
  8. LISINOPRIL [Concomitant]
  9. FUROSEMIDE [Concomitant]

REACTIONS (6)
  - CHRONIC OBSTRUCTIVE PULMONARY DISEASE [None]
  - URINARY RETENTION [None]
  - BENIGN PROSTATIC HYPERPLASIA [None]
  - CARDIAC FAILURE [None]
  - CONDITION AGGRAVATED [None]
  - UPPER RESPIRATORY TRACT INFECTION [None]
